FAERS Safety Report 8563634-9 (Version None)
Quarter: 2012Q3

REPORT INFORMATION
  Report Type: 
  Country: None (occurrence: None)
  Receive Date: 20120803
  Receipt Date: 20120723
  Transmission Date: 20120928
  Serious: Yes (Death)
  Sender: FDA-Public Use
  Company Number: US-BIOGENIDEC-2012BI026932

PATIENT
  Age: 53 Year
  Sex: Male

DRUGS (5)
  1. CYMBALTA [Concomitant]
     Indication: AFFECTIVE DISORDER
     Dates: start: 20100813
  2. ABILIFY [Concomitant]
     Indication: AFFECTIVE DISORDER
     Dates: start: 20110101
  3. BACLOFEN [Concomitant]
     Indication: MUSCLE SPASTICITY
     Dates: start: 20090911
  4. TYSABRI [Suspect]
     Indication: MULTIPLE SCLEROSIS
     Route: 042
     Dates: start: 20080408, end: 20120626
  5. AMPYRA [Concomitant]
     Indication: GAIT DISTURBANCE
     Dates: start: 20100813

REACTIONS (1)
  - COMPLETED SUICIDE [None]
